FAERS Safety Report 8896132 (Version 1)
Quarter: 2012Q4

REPORT INFORMATION
  Report Type: 
  Country: IT (occurrence: IT)
  Receive Date: 20121108
  Receipt Date: 20121108
  Transmission Date: 20130627
  Serious: Yes (Other)
  Sender: FDA-Public Use
  Company Number: IT-MYLANLABS-2012S1022335

PATIENT
  Age: 65 Year
  Sex: Female

DRUGS (3)
  1. METFORMIN [Suspect]
     Indication: TYPE 2 DIABETES MELLITUS
     Route: 048
     Dates: start: 20120921
  2. METFORMIN [Suspect]
     Indication: TYPE 2 DIABETES MELLITUS
     Route: 048
  3. METFORMIN [Suspect]
     Indication: TYPE 2 DIABETES MELLITUS
     Route: 048
     Dates: end: 20121021

REACTIONS (5)
  - Swelling [Recovering/Resolving]
  - Headache [Recovering/Resolving]
  - Dizziness [Recovering/Resolving]
  - Nausea [Recovering/Resolving]
  - Activities of daily living impaired [Recovering/Resolving]
